FAERS Safety Report 5062065-6 (Version None)
Quarter: 2006Q3

REPORT INFORMATION
  Report Type: 
  Country: None (occurrence: None)
  Receive Date: 20060720
  Receipt Date: 20060720
  Transmission Date: 20061208
  Serious: Yes (Hospitalization)
  Sender: FDA-Public Use
  Company Number: None

PATIENT
  Age: 64 Year
  Sex: Male
  Weight: 101.6 kg

DRUGS (16)
  1. ERYTHROMYCIN [Suspect]
     Indication: DRUG HYPERSENSITIVITY
     Dosage: 250 MG Q6H
     Dates: start: 20060520, end: 20060521
  2. ERYTHROMYCIN [Suspect]
     Indication: INFECTION
     Dosage: 250 MG Q6H
     Dates: start: 20060520, end: 20060521
  3. ERYTHROMYCIN [Suspect]
     Indication: SCARLET FEVER
     Dosage: 250 MG Q6H
     Dates: start: 20060520, end: 20060521
  4. POTASSIUM CHLORIDE [Concomitant]
  5. SIMVASTATIN [Concomitant]
  6. GLIPIZIDE [Concomitant]
  7. METFORMIN HYDROCHLORIDE [Concomitant]
  8. TERAZOSIN HCL [Concomitant]
  9. PAROXETINE HCL [Concomitant]
  10. FINASTERIDE [Concomitant]
  11. HYDROCHLOROTHIAZIDE [Concomitant]
  12. LISINOPRIL [Concomitant]
  13. SYNTHROID [Concomitant]
  14. NITROGLYCERIN [Concomitant]
  15. ISOSORBIDE MONONITRATE [Concomitant]
  16. METOPROLOL TARTRATE [Concomitant]

REACTIONS (1)
  - HEART RATE IRREGULAR [None]
